FAERS Safety Report 7277590-7 (Version None)
Quarter: 2011Q1

REPORT INFORMATION
  Report Type: 
  Country: None (occurrence: None)
  Receive Date: 20110207
  Receipt Date: 20110125
  Transmission Date: 20110831
  Serious: Yes (Other)
  Sender: FDA-Public Use
  Company Number: US-ELI_LILLY_AND_COMPANY-US201101006841

PATIENT
  Sex: Female

DRUGS (1)
  1. FORTEO [Suspect]
     Indication: OSTEOPOROSIS
     Dosage: 20 UG, DAILY (1/D)
     Dates: start: 20070301, end: 20070601

REACTIONS (4)
  - LOSS OF CONSCIOUSNESS [None]
  - INTRACRANIAL ANEURYSM [None]
  - GASTRIC ULCER [None]
  - SCAR [None]
